FAERS Safety Report 4615351-5 (Version None)
Quarter: 2005Q1

REPORT INFORMATION
  Report Type: 
  Country: None (occurrence: None)
  Receive Date: 20050317
  Receipt Date: 20050308
  Transmission Date: 20050727
  Serious: No
  Sender: FDA-Public Use
  Company Number: 2005AP01686

PATIENT
  Age: 75 Year
  Sex: Male

DRUGS (5)
  1. LISINOPRIL [Suspect]
     Dosage: 5 MG DAILY PO
     Route: 048
     Dates: end: 20041116
  2. METFORMIN HYDROCHLORIDE [Suspect]
     Indication: DIABETES MELLITUS
     Dosage: 500 MG DAILY PO
     Route: 048
  3. GLIBENCLAMIDE [Suspect]
     Indication: DIABETES MELLITUS
     Dosage: 5 MG DAILY PO
     Route: 048
  4. PANTOPRAZOLE SODIUM [Concomitant]
  5. NITROGLYCERIN [Concomitant]

REACTIONS (2)
  - HYPERKALAEMIA [None]
  - METABOLIC ACIDOSIS [None]
